FAERS Safety Report 21097474 (Version 1)
Quarter: 2022Q3

REPORT INFORMATION
  Report Type: Spontaneous
  Country: CZ (occurrence: CZ)
  Receive Date: 20220719
  Receipt Date: 20220719
  Transmission Date: 20221026
  Serious: Yes (Disabling, Other)
  Sender: FDA-Public Use
  Company Number: CZ-LESVI-2022002090

PATIENT
  Age: 23 Year
  Sex: Male

DRUGS (5)
  1. OLANZAPINE [Suspect]
     Active Substance: OLANZAPINE
     Indication: Hallucination, auditory
     Dosage: UNK
     Route: 065
  2. OLANZAPINE [Suspect]
     Active Substance: OLANZAPINE
     Indication: Paranoia
  3. OLANZAPINE [Suspect]
     Active Substance: OLANZAPINE
     Indication: Aggression
  4. OLANZAPINE [Suspect]
     Active Substance: OLANZAPINE
     Indication: Schizophrenia
  5. OLANZAPINE [Suspect]
     Active Substance: OLANZAPINE
     Indication: Restlessness

REACTIONS (3)
  - Sedation complication [Recovered/Resolved]
  - Weight increased [Recovering/Resolving]
  - Intentional product misuse [Unknown]
